FAERS Safety Report 11468504 (Version 2)
Quarter: 2015Q3

REPORT INFORMATION
  Report Type: Spontaneous
  Country: US (occurrence: US)
  Receive Date: 20150903
  Receipt Date: 20150903
  Transmission Date: 20151125
  Serious: No
  Sender: FDA-Public Use
  Company Number: US-ELI_LILLY_AND_COMPANY-US201109004372

PATIENT
  Sex: Female

DRUGS (14)
  1. GABAPENTIN. [Concomitant]
     Active Substance: GABAPENTIN
  2. TICLOPIDINE HCL [Concomitant]
     Active Substance: TICLOPIDINE HYDROCHLORIDE
  3. LASIX [Concomitant]
     Active Substance: FUROSEMIDE
  4. LANOXIN [Concomitant]
     Active Substance: DIGOXIN
  5. ALBUTEROL SULFATE. [Concomitant]
     Active Substance: ALBUTEROL SULFATE
  6. CYMBALTA [Suspect]
     Active Substance: DULOXETINE HYDROCHLORIDE
     Dosage: 30 MG, UNK
     Dates: start: 20110910, end: 20110910
  7. LISINOPRIL. [Concomitant]
     Active Substance: LISINOPRIL
  8. XANAX [Interacting]
     Active Substance: ALPRAZOLAM
  9. IPRATROPIUM [Concomitant]
     Active Substance: IPRATROPIUM
  10. BABY ASPIRIN [Concomitant]
     Active Substance: ASPIRIN
  11. SIMVASTATIN. [Concomitant]
     Active Substance: SIMVASTATIN
  12. PROTONIX [Concomitant]
     Active Substance: PANTOPRAZOLE SODIUM
  13. K-DUR [Concomitant]
     Active Substance: POTASSIUM CHLORIDE
  14. GLIPIZIDE. [Concomitant]
     Active Substance: GLIPIZIDE

REACTIONS (5)
  - Decreased activity [Unknown]
  - Hypokinesia [Unknown]
  - Feeling abnormal [Unknown]
  - Anxiety [Unknown]
  - Drug interaction [Recovered/Resolved]
